FAERS Safety Report 18156519 (Version 1)
Quarter: 2020Q3

REPORT INFORMATION
  Report Type: Spontaneous
  Country: US (occurrence: US)
  Receive Date: 20200816
  Receipt Date: 20200816
  Transmission Date: 20201103
  Serious: Yes (Other)
  Sender: FDA-Public Use
  Company Number: None

PATIENT
  Age: 72 Year
  Sex: Female

DRUGS (3)
  1. LISINOPRIL. [Concomitant]
     Active Substance: LISINOPRIL
     Dates: start: 20200309, end: 20200816
  2. MELOXICAM 15MG [Concomitant]
     Active Substance: MELOXICAM
     Dates: start: 20200309, end: 20200816
  3. METFORMIN EXTENDED RELEASE [Suspect]
     Active Substance: METFORMIN HYDROCHLORIDE
     Indication: TYPE 2 DIABETES MELLITUS
     Route: 048
     Dates: start: 20200620, end: 20200719

REACTIONS (2)
  - Blood glucose increased [None]
  - Product substitution issue [None]

NARRATIVE: CASE EVENT DATE: 20200719
